FAERS Safety Report 7025408-X (Version None)
Quarter: 2010Q4

REPORT INFORMATION
  Report Type: 
  Country: None (occurrence: None)
  Receive Date: 20101001
  Receipt Date: 20100923
  Transmission Date: 20110411
  Serious: Yes (Death, Hospitalization, Other)
  Sender: FDA-Public Use
  Company Number: PHHY2010MX28263

PATIENT
  Sex: Female

DRUGS (3)
  1. ZOMETA [Suspect]
     Indication: MULTIPLE MYELOMA
     Dosage: 4 MG, QMO
     Route: 042
     Dates: start: 20090201, end: 20090801
  2. DIOVAN HCT [Suspect]
     Indication: HYPERTENSION
     Dosage: 2 DF, QD
     Route: 048
     Dates: start: 20090301, end: 20090801
  3. ALIN [Concomitant]

REACTIONS (3)
  - ANAEMIA [None]
  - BLOOD PRESSURE INADEQUATELY CONTROLLED [None]
  - MALIGNANT NEOPLASM PROGRESSION [None]
